FAERS Safety Report 9728324 (Version 1)
Quarter: 2013Q4

REPORT INFORMATION
  Report Type: Spontaneous
  Country: US (occurrence: US)
  Receive Date: 20131204
  Receipt Date: 20131204
  Transmission Date: 20140711
  Serious: Yes (Life-Threatening)
  Sender: FDA-Public Use
  Company Number: US-BAYER-2013-145547

PATIENT
  Age: 74 Year
  Sex: Male

DRUGS (2)
  1. GADAVIST [Suspect]
     Indication: SCAN BRAIN
     Dosage: 7.5 ML, ONCE
     Route: 042
     Dates: start: 20131116, end: 20131116
  2. GADAVIST [Suspect]
     Indication: LYMPHOMA

REACTIONS (1)
  - Respiratory arrest [None]
